FAERS Safety Report 9752938 (Version 1)
Quarter: 2013Q4

REPORT INFORMATION
  Report Type: Spontaneous
  Country: US (occurrence: None)
  Receive Date: 20131211
  Receipt Date: 20131211
  Transmission Date: 20140711
  Serious: Yes (Other)
  Sender: FDA-Public Use
  Company Number: 7254650

PATIENT
  Sex: 0

DRUGS (1)
  1. LEVOTHYROXINE SODIUM [Suspect]
     Indication: THYROID CANCER

REACTIONS (5)
  - Atrial fibrillation [None]
  - Palpitations [None]
  - Blood thyroid stimulating hormone abnormal [None]
  - Therapeutic response unexpected with drug substitution [None]
  - Product substitution issue [None]
